FAERS Safety Report 12774388 (Version 2)
Quarter: 2016Q3

REPORT INFORMATION
  Report Type: Report from Study
  Country: US (occurrence: US)
  Receive Date: 20160923
  Receipt Date: 20160928
  Transmission Date: 20161109
  Serious: No
  Sender: FDA-Public Use
  Company Number: US-AMGEN-USASP2016122010

PATIENT
  Age: 48 Year
  Sex: Female

DRUGS (3)
  1. INSULIN [Concomitant]
     Active Substance: INSULIN NOS
     Indication: DIABETES MELLITUS
     Dosage: UNK
     Route: 065
  2. NEURONTIN [Concomitant]
     Active Substance: GABAPENTIN
     Indication: NEURALGIA
     Dosage: UNK
     Route: 065
  3. ENBREL [Suspect]
     Active Substance: ETANERCEPT
     Indication: RHEUMATOID ARTHRITIS
     Dosage: 50 MG, QWK
     Route: 065
     Dates: start: 20160831

REACTIONS (11)
  - Fear of eating [Unknown]
  - Wrong drug administered [Unknown]
  - Blood glucose increased [Recovering/Resolving]
  - Feeling abnormal [Unknown]
  - Nausea [Not Recovered/Not Resolved]
  - Joint stiffness [Unknown]
  - Fatigue [Unknown]
  - Headache [Unknown]
  - Disturbance in attention [Unknown]
  - Vomiting [Not Recovered/Not Resolved]
  - Memory impairment [Unknown]

NARRATIVE: CASE EVENT DATE: 2016
